FAERS Safety Report 20612527 (Version 1)
Quarter: 2022Q1

REPORT INFORMATION
  Report Type: Spontaneous
  Country: US (occurrence: US)
  Receive Date: 20220318
  Receipt Date: 20220318
  Transmission Date: 20220424
  Serious: No
  Sender: FDA-Public Use
  Company Number: US-GILEAD-2022-0573789

PATIENT
  Age: 63 Year
  Sex: Female

DRUGS (1)
  1. CAYSTON [Suspect]
     Active Substance: AZTREONAM
     Indication: Product used for unknown indication
     Route: 065

REACTIONS (5)
  - Chills [Not Recovered/Not Resolved]
  - Pyrexia [Recovering/Resolving]
  - Hyperhidrosis [Unknown]
  - Nasal congestion [Not Recovered/Not Resolved]
  - Respiratory tract infection [Not Recovered/Not Resolved]
